FAERS Safety Report 6844891-3 (Version None)
Quarter: 2010Q3

REPORT INFORMATION
  Report Type: 
  Country: None (occurrence: None)
  Receive Date: 20100713
  Receipt Date: 20100629
  Transmission Date: 20110219
  Serious: Yes (Death, Hospitalization)
  Sender: FDA-Public Use
  Company Number: A-NJ2010-36464

PATIENT
  Age: 60 Year
  Sex: Female

DRUGS (11)
  1. TRACLEER [Suspect]
     Indication: PULMONARY ARTERIAL HYPERTENSION
     Dosage: 125 MG, BID, ORAL, 62.5 MG, BID, ORAL
     Route: 048
     Dates: start: 20090217, end: 20100223
  2. TRACLEER [Suspect]
     Indication: PULMONARY ARTERIAL HYPERTENSION
     Dosage: 125 MG, BID, ORAL, 62.5 MG, BID, ORAL
     Route: 048
     Dates: start: 20090224
  3. COMBIVENT (SALBUTAMOL) [Concomitant]
  4. FERROUS SULFATE TAB [Concomitant]
  5. MULTIVITAMINS AND IRON [Concomitant]
  6. CHLORACON (BECLAMIDE) [Concomitant]
  7. OXYGEN (OXYGEN) [Concomitant]
  8. PAXIL [Concomitant]
  9. VISTARIL (HYDROXYZINE HYDROCHLORIDE) [Concomitant]
  10. ZANTAC 150 [Concomitant]
  11. ZOCOR [Concomitant]

REACTIONS (7)
  - FLUID RETENTION [None]
  - LEFT VENTRICULAR HYPERTROPHY [None]
  - PNEUMONIA ASPIRATION [None]
  - PULMONARY ARTERIAL HYPERTENSION [None]
  - RESPIRATORY FAILURE [None]
  - SEPSIS [None]
  - TOOTH ABSCESS [None]
